FAERS Safety Report 4894764-0 (Version None)
Quarter: 2006Q1

REPORT INFORMATION
  Report Type: 
  Country: None (occurrence: None)
  Receive Date: 20060126
  Receipt Date: 20060126
  Transmission Date: 20060701
  Serious: Yes (Life-Threatening, Hospitalization)
  Sender: FDA-Public Use
  Company Number: None

PATIENT
  Age: 6 Month
  Sex: Male
  Weight: 9.0719 kg

DRUGS (1)
  1. TEETING TABLETS NONE HYLAND'S [Suspect]
     Indication: TEETHING
     Dosage: 2-3 TABLETS EVERY 6 HOURS PO
     Route: 048
     Dates: start: 20051001, end: 20051219

REACTIONS (1)
  - SLEEP APNOEA SYNDROME [None]
